FAERS Safety Report 11137162 (Version 2)
Quarter: 2015Q2

REPORT INFORMATION
  Report Type: Report from Study
  Country: CZ (occurrence: CZ)
  Receive Date: 20150526
  Receipt Date: 20150601
  Transmission Date: 20150821
  Serious: Yes (Hospitalization, Other)
  Sender: FDA-Public Use
  Company Number: CZ-ABBVIE-15P-217-1385920-00

PATIENT
  Age: 9 Year
  Sex: Female

DRUGS (9)
  1. PROBIOTICS [Concomitant]
     Active Substance: PROBIOTICS NOS
     Indication: PROPHYLAXIS
     Route: 048
     Dates: start: 20141001, end: 20150430
  2. MODULEN IBD [Concomitant]
     Indication: CROHN^S DISEASE
     Route: 048
     Dates: start: 20140523, end: 20140706
  3. AZATHIOPRINE. [Suspect]
     Active Substance: AZATHIOPRINE
     Indication: CROHN^S DISEASE
     Route: 048
     Dates: start: 20140602, end: 20140921
  4. VIGANTOL [Concomitant]
     Indication: PROPHYLAXIS
     Route: 048
     Dates: start: 20141001
  5. ENTIZOL [Concomitant]
     Indication: CROHN^S DISEASE
     Route: 048
     Dates: start: 20150211, end: 20150430
  6. AZATHIOPRINE. [Suspect]
     Active Substance: AZATHIOPRINE
     Route: 048
     Dates: start: 20140922
  7. HELICID [Concomitant]
     Indication: DUODENITIS
     Route: 048
     Dates: start: 20150223
  8. MODULEN IBD [Concomitant]
     Route: 048
     Dates: start: 20150223
  9. HUMIRA [Suspect]
     Active Substance: ADALIMUMAB
     Indication: CROHN^S DISEASE
     Route: 058
     Dates: start: 20150414

REACTIONS (4)
  - Intestinal obstruction [Recovered/Resolved with Sequelae]
  - Enteritis [Recovered/Resolved with Sequelae]
  - Ileal stenosis [Recovered/Resolved with Sequelae]
  - Jejunal stenosis [Recovered/Resolved with Sequelae]

NARRATIVE: CASE EVENT DATE: 20150430
